FAERS Safety Report 5310961-4 (Version None)
Quarter: 2007Q2

REPORT INFORMATION
  Report Type: 
  Country: None (occurrence: None)
  Receive Date: 20070430
  Receipt Date: 20070418
  Transmission Date: 20071010
  Serious: Yes (Other)
  Sender: FDA-Public Use
  Company Number: DE-JNJFOC-20070205294

PATIENT
  Sex: Male

DRUGS (4)
  1. PREZISTA [Suspect]
     Route: 048
  2. PREZISTA [Suspect]
     Indication: HIV INFECTION
     Route: 048
  3. RITONAVIR [Concomitant]
     Indication: HIV INFECTION
  4. COMBIVIR [Concomitant]
     Indication: HIV INFECTION
     Route: 065

REACTIONS (9)
  - BACK PAIN [None]
  - DISTURBANCE IN ATTENTION [None]
  - FATIGUE [None]
  - MEDICATION ERROR [None]
  - MUSCLE SPASMS [None]
  - MUSCULAR WEAKNESS [None]
  - NEUROMYOPATHY [None]
  - PERIPHERAL COLDNESS [None]
  - RASH [None]
